FAERS Safety Report 16869835 (Version 1)
Quarter: 2019Q3

REPORT INFORMATION
  Report Type: Spontaneous
  Country: US (occurrence: US)
  Receive Date: 20190930
  Receipt Date: 20190930
  Transmission Date: 20191005
  Serious: No
  Sender: FDA-Public Use
  Company Number: US-SA-2019SA264493

PATIENT
  Age: 49 Year
  Sex: Female

DRUGS (1)
  1. DUPIXENT [Suspect]
     Active Substance: DUPILUMAB
     Indication: FOLLICULITIS
     Dosage: 300 MG, QOW
     Route: 058
     Dates: start: 20190724

REACTIONS (4)
  - Product use in unapproved indication [Unknown]
  - Rash [Recovering/Resolving]
  - Therapeutic response decreased [Unknown]
  - Rash [Not Recovered/Not Resolved]

NARRATIVE: CASE EVENT DATE: 2019
